FAERS Safety Report 9932564 (Version 2)
Quarter: 2014Q1

REPORT INFORMATION
  Report Type: Spontaneous
  Country: JP (occurrence: JP)
  Receive Date: 20140228
  Receipt Date: 20140306
  Transmission Date: 20141002
  Serious: No
  Sender: FDA-Public Use
  Company Number: JP-ASTRAZENECA-2014SE12815

PATIENT
  Age: 60 Year
  Sex: Male

DRUGS (4)
  1. SYMBICORT TURBUHALER [Suspect]
     Indication: ASTHMA
     Dosage: UNKNOWN DOSE, AS REQUIRED
     Route: 055
     Dates: start: 20140110
  2. SYMBICORT TURBUHALER [Suspect]
     Indication: ASTHMA
     Dosage: UNKNOWN DOSE, AS REQUIRED
     Route: 055
     Dates: start: 20140117
  3. SYMBICORT TURBUHALER [Suspect]
     Indication: ASTHMA
     Dosage: UNKNOWN DOSE, AS REQUIRED
     Route: 055
     Dates: start: 20140122
  4. ALLEGRA [Suspect]
     Route: 048
     Dates: start: 20140110

REACTIONS (1)
  - Muscle twitching [Unknown]
